FAERS Safety Report 5828071-6 (Version None)
Quarter: 2008Q3

REPORT INFORMATION
  Report Type: 
  Country: None (occurrence: None)
  Receive Date: 20080730
  Receipt Date: 20070626
  Transmission Date: 20090109
  Serious: No
  Sender: FDA-Public Use
  Company Number: A0654471A

PATIENT
  Age: 7 Month
  Sex: Male

DRUGS (1)
  1. ZANTAC [Suspect]
     Dosage: 1TSP TWICE PER DAY
     Route: 065

REACTIONS (4)
  - DRUG DISPENSING ERROR [None]
  - GASTROOESOPHAGEAL REFLUX DISEASE [None]
  - OVERDOSE [None]
  - VOMITING [None]
